FAERS Safety Report 17574152 (Version 1)
Quarter: 2020Q1

REPORT INFORMATION
  Report Type: Spontaneous
  Country: US (occurrence: US)
  Receive Date: 20200323
  Receipt Date: 20200323
  Transmission Date: 20200409
  Serious: Yes (Hospitalization, Other)
  Sender: FDA-Public Use
  Company Number: US-ALEXION PHARMACEUTICALS INC-A202003699

PATIENT
  Age: 69 Year
  Sex: Female

DRUGS (1)
  1. STRENSIQ [Suspect]
     Active Substance: ASFOTASE ALFA
     Indication: HYPOPHOSPHATASIA
     Dosage: UNK
     Route: 030
     Dates: start: 20200103, end: 20200215

REACTIONS (7)
  - Rash erythematous [Recovered/Resolved]
  - Dyspnoea exertional [Not Recovered/Not Resolved]
  - Injection site pruritus [Recovered/Resolved]
  - Rash [Recovered/Resolved]
  - Injection site rash [Recovered/Resolved]
  - Dyspnoea [Not Recovered/Not Resolved]
  - Pulmonary embolism [Recovering/Resolving]

NARRATIVE: CASE EVENT DATE: 20200115
